FAERS Safety Report 9158241 (Version 3)
Quarter: 2013Q2

REPORT INFORMATION
  Report Type: Spontaneous
  Country: IE (occurrence: IE)
  Receive Date: 20130312
  Receipt Date: 20130626
  Transmission Date: 20140414
  Serious: No
  Sender: FDA-Public Use
  Company Number: IE-ASTRAZENECA-2013SE15925

PATIENT
  Age: 7 Month
  Sex: Male
  Weight: 6.2 kg

DRUGS (6)
  1. SYNAGIS [Suspect]
     Route: 030
     Dates: start: 20121205
  2. GAVISCON [Concomitant]
  3. FERINSOL [Concomitant]
     Indication: MINERAL SUPPLEMENTATION
     Dosage: DAILY
     Route: 048
  4. FERINSOL [Concomitant]
     Indication: MEDICAL DIET
     Dosage: DAILY
     Route: 048
  5. ABIDEC [Concomitant]
     Indication: VITAMIN SUPPLEMENTATION
     Route: 048
  6. ABIDEC [Concomitant]
     Indication: MEDICAL DIET
     Route: 048

REACTIONS (6)
  - Hydrocele [Unknown]
  - Cough [Unknown]
  - Rhinorrhoea [Unknown]
  - Scrotal haematocoele [Unknown]
  - Testicular torsion [Unknown]
  - Hernia [Unknown]
